FAERS Safety Report 11647729 (Version 1)
Quarter: 2015Q4

REPORT INFORMATION
  Report Type: Spontaneous
  Country: US (occurrence: None)
  Receive Date: 20151020
  Receipt Date: 20151020
  Transmission Date: 20160304
  Serious: Yes (Other)
  Sender: FDA-Public Use
  Company Number: None

PATIENT
  Age: 48 Year
  Sex: Male
  Weight: 107.05 kg

DRUGS (22)
  1. PERCOCET [Concomitant]
     Active Substance: ACETAMINOPHEN\OXYCODONE HYDROCHLORIDE
  2. SYMBICORT [Concomitant]
     Active Substance: BUDESONIDE\FORMOTEROL FUMARATE DIHYDRATE
  3. DOXYZOCIN [Concomitant]
  4. VITAMIN C [Concomitant]
     Active Substance: ASCORBIC ACID
  5. ZINC [Concomitant]
     Active Substance: ZINC\ZINC CHLORIDE
  6. CALCIUM [Concomitant]
     Active Substance: CALCIUM
  7. TIZANADINE [Concomitant]
  8. VITAMIN B COMPLEX [Concomitant]
     Active Substance: CYANOCOBALAMIN\DEXPANTHENOL\NIACINAMIDE\PYRIDOXINE HYDROCHLORIDE\RIBOFLAVIN 5^-PHOSPHATE SODIUM\THIAMINE HYDROCHLORIDE\VITAMIN B COMPLEX
  9. METHOTREXATE [Concomitant]
     Active Substance: METHOTREXATE
  10. BYSTOLIC [Concomitant]
     Active Substance: NEBIVOLOL HYDROCHLORIDE
  11. CELEBREX [Concomitant]
     Active Substance: CELECOXIB
  12. VENTOLIN [Concomitant]
     Active Substance: ALBUTEROL SULFATE
  13. PROCARDIA [Concomitant]
     Active Substance: NIFEDIPINE
  14. FUROSIMIDE [Concomitant]
     Active Substance: FUROSEMIDE
  15. XARELTO [Suspect]
     Active Substance: RIVAROXABAN
     Indication: DEEP VEIN THROMBOSIS
     Route: 048
  16. PREDNISONE. [Concomitant]
     Active Substance: PREDNISONE
  17. VITAMIN D [Concomitant]
     Active Substance: CHOLECALCIFEROL
  18. REMICADE [Concomitant]
     Active Substance: INFLIXIMAB
  19. GABAPENTIN. [Concomitant]
     Active Substance: GABAPENTIN
  20. FOLIC ACID. [Concomitant]
     Active Substance: FOLIC ACID
  21. XARELTO [Suspect]
     Active Substance: RIVAROXABAN
     Indication: PULMONARY EMBOLISM
     Route: 048
  22. SONATA [Concomitant]
     Active Substance: ZALEPLON

REACTIONS (3)
  - Muscular weakness [None]
  - Back pain [None]
  - Pain [None]

NARRATIVE: CASE EVENT DATE: 20150901
